FAERS Safety Report 7033033-X (Version None)
Quarter: 2010Q4

REPORT INFORMATION
  Report Type: 
  Country: None (occurrence: None)
  Receive Date: 20101007
  Receipt Date: 20100929
  Transmission Date: 20110411
  Serious: Yes (Other)
  Sender: FDA-Public Use
  Company Number: SE-PFIZER INC-2010123425

PATIENT
  Age: 54 Year
  Sex: Male

DRUGS (2)
  1. SUTENT [Suspect]
     Indication: RENAL CANCER
     Dosage: 50 MG, 1X/DAY
     Dates: start: 20080601, end: 20100620
  2. ALLOPURINOL [Concomitant]
     Dosage: UNK

REACTIONS (2)
  - DIABETES MELLITUS [None]
  - OSTEOARTHRITIS [None]
